FAERS Safety Report 19085220 (Version 1)
Quarter: 2021Q2

REPORT INFORMATION
  Report Type: Spontaneous
  Country: US (occurrence: US)
  Receive Date: 20210402
  Receipt Date: 20210402
  Transmission Date: 20210717
  Serious: No
  Sender: FDA-Public Use
  Company Number: US-SA-2021SA105650

PATIENT
  Age: 63 Year
  Sex: Female

DRUGS (2)
  1. COVID?19 VACCINE NOS. [Suspect]
     Active Substance: COVID-19 VACCINE NOS
  2. DUPIXENT [Suspect]
     Active Substance: DUPILUMAB
     Indication: MULTIPLE SCLEROSIS
     Dosage: 300 MG
     Route: 058
     Dates: start: 20200403

REACTIONS (2)
  - Product use in unapproved indication [Unknown]
  - Adverse reaction [Unknown]

NARRATIVE: CASE EVENT DATE: 20200403
